FAERS Safety Report 7485040-0 (Version None)
Quarter: 2011Q2

REPORT INFORMATION
  Report Type: 
  Country: None (occurrence: None)
  Receive Date: 20110517
  Receipt Date: 20101101
  Transmission Date: 20111010
  Serious: Yes (Hospitalization)
  Sender: FDA-Public Use
  Company Number: US-BAYER-201033811NA

PATIENT
  Age: 18 Year
  Sex: Female
  Weight: 127 kg

DRUGS (8)
  1. LEVOTHYROXINE SODIUM [Concomitant]
     Indication: HYPOTHYROIDISM
     Dosage: 150 ?G (DAILY DOSE), QD, ORAL
     Route: 048
     Dates: start: 20030101, end: 20070615
  2. AMOXICILLIN [Concomitant]
     Indication: MALAISE
     Route: 065
  3. SKELAXIN [Concomitant]
  4. IBUPROFEN [Concomitant]
     Indication: PRODUCT USED FOR UNKNOWN INDICATION
     Route: 065
  5. METFORMIN HCL [Concomitant]
     Indication: INSULIN RESISTANCE
     Dosage: 1000 MG (DAILY DOSE), HS, ORAL
     Route: 048
     Dates: start: 20061001, end: 20070601
  6. TRIMETHOBENZAMIDE HCL [Concomitant]
     Indication: NAUSEA
     Dosage: 1200 MG (DAILY DOSE), QID, UNKNOWN
     Route: 065
     Dates: start: 20070717, end: 20070801
  7. YAZ [Suspect]
     Indication: MENSTRUATION IRREGULAR
     Route: 048
     Dates: start: 20061101, end: 20070601
  8. YAZ [Suspect]
     Indication: ORAL CONTRACEPTION

REACTIONS (5)
  - CHOLELITHIASIS [None]
  - ABDOMINAL PAIN UPPER [None]
  - CHOLECYSTITIS CHRONIC [None]
  - DYSPEPSIA [None]
  - BILIARY COLIC [None]
